FAERS Safety Report 5447221-7 (Version None)
Quarter: 2007Q3

REPORT INFORMATION
  Report Type: 
  Country: None (occurrence: None)
  Receive Date: 20070910
  Receipt Date: 20070905
  Transmission Date: 20080115
  Serious: Yes (Other)
  Sender: FDA-Public Use
  Company Number: BE-JNJFOC-20070900599

PATIENT
  Sex: Male

DRUGS (5)
  1. RISPERDAL [Suspect]
     Indication: SCHIZOPHRENIA
     Route: 048
  2. CLOZAPINE [Concomitant]
     Indication: SCHIZOPHRENIA
  3. PANTOPRAZOLE SODIUM [Concomitant]
  4. BENZODIAZEPINE [Concomitant]
  5. DOMINAL [Concomitant]

REACTIONS (2)
  - BLOOD IMMUNOGLOBULIN E INCREASED [None]
  - EOSINOPHIL COUNT INCREASED [None]
